FAERS Safety Report 19400209 (Version 2)
Quarter: 2021Q2

REPORT INFORMATION
  Report Type: Spontaneous
  Country: SA (occurrence: SA)
  Receive Date: 20210610
  Receipt Date: 20210616
  Transmission Date: 20210717
  Serious: Yes (Other)
  Sender: FDA-Public Use
  Company Number: SA-IPSEN BIOPHARMACEUTICALS, INC.-2021-14360

PATIENT
  Age: 5 Year

DRUGS (2)
  1. BOTULINUM TOXIN TYPE A [Suspect]
     Active Substance: BOTULINUM TOXIN TYPE A
     Indication: ALBINISM
     Dosage: 40 UNITS [0.4 ML (20 UNITS) INTO EACH MEDIAL RECTUS]
     Route: 031
  2. BOTULINUM TOXIN TYPE A [Suspect]
     Active Substance: BOTULINUM TOXIN TYPE A
     Indication: OFF LABEL USE

REACTIONS (6)
  - Vitreous haemorrhage [Recovered/Resolved]
  - Retinal scar [Not Recovered/Not Resolved]
  - Retinal tear [Unknown]
  - Retinal detachment [Recovered/Resolved]
  - Accidental exposure to product [Unknown]
  - Off label use [Unknown]
